FAERS Safety Report 14729163 (Version 1)
Quarter: 2018Q2

REPORT INFORMATION
  Report Type: Spontaneous
  Country: US (occurrence: US)
  Receive Date: 20180402
  Receipt Date: 20180402
  Transmission Date: 20180711
  Serious: No
  Sender: FDA-Public Use
  Company Number: None

PATIENT
  Age: 52 Year
  Sex: Female
  Weight: 76.5 kg

DRUGS (10)
  1. CALCIUM [Concomitant]
     Active Substance: CALCIUM
  2. NASACORT [Concomitant]
     Active Substance: TRIAMCINOLONE ACETONIDE
  3. AMBIEN [Concomitant]
     Active Substance: ZOLPIDEM TARTRATE
  4. CLARITIN [Concomitant]
     Active Substance: LORATADINE
  5. RELPAX [Concomitant]
     Active Substance: ELETRIPTAN HYDROBROMIDE
  6. FLAXSEED [Concomitant]
     Active Substance: FLAX SEED
  7. FLUOXETINE [Suspect]
     Active Substance: FLUOXETINE HYDROCHLORIDE
     Indication: PAIN
     Dosage: ?          QUANTITY:1 CAPSULE(S);?
     Route: 048
     Dates: start: 20180323
  8. LOPREEZA [Concomitant]
     Active Substance: ESTRADIOL\NORETHINDRONE ACETATE
  9. ALIGN PROBIOTIC [Concomitant]
  10. WOMEN^S MULTIVITAMIN [Concomitant]

REACTIONS (3)
  - Product substitution issue [None]
  - Adverse event [None]
  - Migraine [None]

NARRATIVE: CASE EVENT DATE: 20180330
